FAERS Safety Report 5673093-1 (Version None)
Quarter: 2008Q1

REPORT INFORMATION
  Report Type: 
  Country: None (occurrence: None)
  Receive Date: 20080319
  Receipt Date: 20080114
  Transmission Date: 20080703
  Serious: No
  Sender: FDA-Public Use
  Company Number: US-ASTRAZENECA-2008UW01045

PATIENT
  Sex: Female

DRUGS (1)
  1. SYMBICORT [Suspect]
     Dosage: SAMPLE SYMBICORT INHALER
     Route: 055
     Dates: start: 20080108, end: 20080113

REACTIONS (1)
  - ORAL MUCOSAL DISCOLOURATION [None]
